FAERS Safety Report 16818949 (Version 2)
Quarter: 2019Q3

REPORT INFORMATION
  Report Type: Spontaneous
  Country: PT (occurrence: PT)
  Receive Date: 20190917
  Receipt Date: 20190919
  Transmission Date: 20191005
  Serious: Yes (Hospitalization, Other)
  Sender: FDA-Public Use
  Company Number: PHHY2019PT214233

PATIENT
  Age: 69 Year
  Sex: Male

DRUGS (2)
  1. RISPERIDONE. [Suspect]
     Active Substance: RISPERIDONE
     Dosage: 1.75 MG, QD
     Route: 065
  2. RISPERIDONE. [Suspect]
     Active Substance: RISPERIDONE
     Indication: MIXED DEMENTIA
     Dosage: 1.5 MG, QD
     Route: 065

REACTIONS (2)
  - Toxic encephalopathy [Recovering/Resolving]
  - Metabolic encephalopathy [Unknown]
